FAERS Safety Report 8732203 (Version 3)
Quarter: 2013Q1

REPORT INFORMATION
  Report Type: Spontaneous
  Country: US (occurrence: US)
  Receive Date: 20120820
  Receipt Date: 20130116
  Transmission Date: 20140127
  Serious: Yes (Hospitalization)
  Sender: FDA-Public Use
  Company Number: US-GILEAD-2012-0059779

PATIENT
  Sex: Male

DRUGS (1)
  1. RANEXA [Suspect]
     Indication: PRODUCT USED FOR UNKNOWN INDICATION
     Dosage: 500 MG, UNK
     Route: 048

REACTIONS (7)
  - Nephrolithiasis [Unknown]
  - Urine odour abnormal [Unknown]
  - Chromaturia [Unknown]
  - Unevaluable event [Unknown]
  - Amphetamines positive [Unknown]
  - Fatigue [Unknown]
  - Vision blurred [Unknown]
